FAERS Safety Report 22895875 (Version 2)
Quarter: 2023Q4

REPORT INFORMATION
  Report Type: Spontaneous
  Country: US (occurrence: US)
  Receive Date: 20230901
  Receipt Date: 20231124
  Transmission Date: 20240110
  Serious: Yes (Other)
  Sender: FDA-Public Use
  Company Number: US-PFIZER INC-PV202300147924

PATIENT
  Age: 75 Year
  Sex: Female

DRUGS (2)
  1. XELJANZ XR [Suspect]
     Active Substance: TOFACITINIB CITRATE
     Indication: Rheumatoid arthritis
     Dosage: 11 MG (3 DAYS/WEEK)
     Route: 048
     Dates: start: 20180315, end: 20221214
  2. XELJANZ XR [Suspect]
     Active Substance: TOFACITINIB CITRATE
     Dosage: 1 TABLET BY MOUTH ONCE DAILY
     Route: 048

REACTIONS (9)
  - Lung neoplasm malignant [Unknown]
  - Road traffic accident [Unknown]
  - Pulmonary mass [Unknown]
  - White blood cell count decreased [Unknown]
  - Joint swelling [Not Recovered/Not Resolved]
  - Arthralgia [Not Recovered/Not Resolved]
  - Influenza [Unknown]
  - Nodule [Unknown]
  - Off label use [Unknown]

NARRATIVE: CASE EVENT DATE: 20180315
